FAERS Safety Report 13121802 (Version 1)
Quarter: 2017Q1

REPORT INFORMATION
  Report Type: Spontaneous
  Country: US (occurrence: US)
  Receive Date: 20170117
  Receipt Date: 20170117
  Transmission Date: 20170428
  Serious: Yes (Other)
  Sender: FDA-Public Use
  Company Number: None

PATIENT
  Age: 68 Year
  Sex: Male
  Weight: 97.2 kg

DRUGS (4)
  1. CELLCEPT [Concomitant]
     Active Substance: MYCOPHENOLATE MOFETIL\MYCOPHENOLATE MOFETIL HYDROCHLORIDE
  2. PREDNISONE. [Concomitant]
     Active Substance: PREDNISONE
  3. ERBITUX [Suspect]
     Active Substance: CETUXIMAB
     Indication: LARYNGEAL CANCER
     Route: 041
     Dates: start: 20160711, end: 20160711
  4. PERIDEX ORAL RINSE [Concomitant]

REACTIONS (11)
  - Pallor [None]
  - Hypopnoea [None]
  - Heart rate increased [None]
  - Pulse abnormal [None]
  - Hypotension [None]
  - Dyskinesia [None]
  - Rhonchi [None]
  - Unresponsive to stimuli [None]
  - Tachycardia [None]
  - Blood pressure fluctuation [None]
  - Presyncope [None]

NARRATIVE: CASE EVENT DATE: 20160711
